FAERS Safety Report 8551171-7 (Version None)
Quarter: 2012Q3

REPORT INFORMATION
  Report Type: 
  Country: None (occurrence: None)
  Receive Date: 20120730
  Receipt Date: 20120228
  Transmission Date: 20120928
  Serious: No
  Sender: FDA-Public Use
  Company Number: US-ALLERGAN-1102607US

PATIENT
  Age: 45 Year
  Sex: Female

DRUGS (2)
  1. REFRESH TEARS [Concomitant]
     Indication: DRY EYE
     Dosage: PRN OU
     Route: 047
  2. LATISSE [Suspect]
     Indication: GROWTH OF EYELASHES
     Dosage: 2 GTT, QPM
     Route: 061
     Dates: start: 20110201

REACTIONS (5)
  - PHOTOPHOBIA [None]
  - DIPLOPIA [None]
  - LACRIMATION INCREASED [None]
  - VISION BLURRED [None]
  - VISUAL ACUITY REDUCED [None]
